FAERS Safety Report 17416870 (Version 4)
Quarter: 2020Q1

REPORT INFORMATION
  Report Type: Report from Study
  Country: SG (occurrence: SG)
  Receive Date: 20200213
  Receipt Date: 20200304
  Transmission Date: 20200409
  Serious: Yes (Hospitalization)
  Sender: FDA-Public Use
  Company Number: SG-JNJFOC-20200209613

PATIENT
  Age: 47 Year
  Sex: Female
  Weight: 62 kg

DRUGS (15)
  1. BIOCODYL [Concomitant]
     Route: 048
  2. CELECOXIB. [Concomitant]
     Active Substance: CELECOXIB
     Route: 048
  3. DOMPERIDONE [Concomitant]
     Active Substance: DOMPERIDONE
     Route: 048
  4. ASCORBIC ACID. [Concomitant]
     Active Substance: ASCORBIC ACID
     Route: 048
  5. ESOMEPRAZOLE. [Concomitant]
     Active Substance: ESOMEPRAZOLE MAGNESIUM
     Route: 048
  6. LACTULOSE. [Concomitant]
     Active Substance: LACTULOSE
     Route: 048
  7. SIMPONI [Suspect]
     Active Substance: GOLIMUMAB
     Indication: ANKYLOSING SPONDYLITIS
     Route: 058
     Dates: start: 20190318
  8. GABAPENTIN. [Concomitant]
     Active Substance: GABAPENTIN
     Route: 048
  9. LORAZEPAM. [Concomitant]
     Active Substance: LORAZEPAM
     Route: 048
  10. TEARS NATURALE                     /00635701/ [Concomitant]
     Route: 047
  11. PARACETAMOL [Concomitant]
     Active Substance: ACETAMINOPHEN
     Route: 048
  12. VALPROATE SODIUM. [Concomitant]
     Active Substance: VALPROATE SODIUM
     Route: 048
  13. KETOPROFEN. [Concomitant]
     Active Substance: KETOPROFEN
     Route: 062
  14. LEVOTHYROXINE SODIUM. [Concomitant]
     Active Substance: LEVOTHYROXINE SODIUM
     Route: 048
  15. QUETIAPINE. [Concomitant]
     Active Substance: QUETIAPINE
     Route: 048

REACTIONS (2)
  - Abdominal adhesions [Not Recovered/Not Resolved]
  - Anal haemorrhage [Not Recovered/Not Resolved]

NARRATIVE: CASE EVENT DATE: 20190401
